FAERS Safety Report 12404362 (Version 4)
Quarter: 2016Q3

REPORT INFORMATION
  Report Type: Report from Study
  Country: US (occurrence: US)
  Receive Date: 20160525
  Receipt Date: 20160713
  Transmission Date: 20161109
  Serious: Yes (Other)
  Sender: FDA-Public Use
  Company Number: US-PFIZER INC-2016263093

PATIENT
  Age: 5 Year
  Sex: Female
  Weight: 23.5 kg

DRUGS (34)
  1. FLUDARABINE PHOSPHATE. [Suspect]
     Active Substance: FLUDARABINE PHOSPHATE
     Indication: ACUTE MYELOID LEUKAEMIA RECURRENT
     Dosage: 25 MG, EVERY 4 HOURS FOR 5 DOSES
     Route: 042
     Dates: start: 20160430, end: 20160504
  2. ACYCLOVIR. [Concomitant]
     Active Substance: ACYCLOVIR
     Indication: PROPHYLAXIS
     Dosage: UNK
     Route: 042
     Dates: start: 20150914
  3. HYDRALAZINE [Concomitant]
     Active Substance: HYDRALAZINE HYDROCHLORIDE
     Indication: HYPERTENSION
     Dosage: UNK
     Route: 042
     Dates: start: 20160506
  4. LORAZEPAM. [Concomitant]
     Active Substance: LORAZEPAM
     Indication: NAUSEA
     Dosage: UNK
     Route: 042
     Dates: start: 20160426
  5. MORPHINE [Concomitant]
     Active Substance: MORPHINE
     Dosage: UNK
     Route: 042
     Dates: start: 20160506
  6. CEFEPIME [Concomitant]
     Active Substance: CEFEPIME HYDROCHLORIDE
     Indication: BACTERAEMIA
  7. CYCLOSPORINE. [Concomitant]
     Active Substance: CYCLOSPORINE
     Indication: PROPHYLAXIS
     Dosage: UNK
     Route: 042
     Dates: start: 20160503
  8. DAPSONE. [Concomitant]
     Active Substance: DAPSONE
     Indication: PROPHYLAXIS
     Dosage: UNK
     Route: 048
     Dates: start: 20151026, end: 20160430
  9. BENADRYL [Concomitant]
     Active Substance: DIPHENHYDRAMINE HYDROCHLORIDE
     Indication: NAUSEA
  10. MESNA. [Concomitant]
     Active Substance: MESNA
     Indication: CHEMOTHERAPY
     Dosage: UNK
     Route: 042
     Dates: start: 20160430, end: 20160430
  11. FILGRASTIM [Concomitant]
     Active Substance: FILGRASTIM
     Dosage: UNK
     Route: 042
     Dates: start: 20160507
  12. MAGNESIUM SULFATE. [Concomitant]
     Active Substance: MAGNESIUM SULFATE
     Indication: HYPOMAGNESAEMIA
     Dosage: UNK
     Route: 042
     Dates: start: 20160501, end: 20160505
  13. CEFEPIME [Concomitant]
     Active Substance: CEFEPIME HYDROCHLORIDE
     Indication: FEBRILE NEUTROPENIA
     Dosage: UNK
     Route: 042
     Dates: start: 20160321
  14. BENADRYL [Concomitant]
     Active Substance: DIPHENHYDRAMINE HYDROCHLORIDE
     Indication: PREMEDICATION
     Dosage: UNK
     Route: 042
     Dates: start: 20160428
  15. FLUCONAZOLE. [Concomitant]
     Active Substance: FLUCONAZOLE
     Indication: ANTIFUNGAL PROPHYLAXIS
     Dosage: UNK
     Route: 048
     Dates: start: 20160321, end: 20160425
  16. FLAGYL [Concomitant]
     Active Substance: METRONIDAZOLE\METRONIDAZOLE HYDROCHLORIDE
     Indication: CLOSTRIDIUM DIFFICILE COLITIS
     Dosage: UNK
     Dates: start: 20160414, end: 20160428
  17. ZOFRAN [Concomitant]
     Active Substance: ONDANSETRON HYDROCHLORIDE
     Indication: NAUSEA
     Dosage: UNK
     Route: 042
     Dates: start: 20160131
  18. URSODIOL. [Concomitant]
     Active Substance: URSODIOL
     Indication: DIURETIC THERAPY
     Dosage: UNK
     Route: 048
     Dates: start: 20160321
  19. VORICONAZOLE. [Concomitant]
     Active Substance: VORICONAZOLE
     Indication: ANTIFUNGAL PROPHYLAXIS
     Dosage: UNK
     Route: 042
     Dates: start: 20160426
  20. MORPHINE [Concomitant]
     Active Substance: MORPHINE
     Indication: PAIN
     Dosage: UNK
     Route: 042
     Dates: start: 20160429, end: 20160502
  21. CYCLOPHOSPHAMIDE. [Suspect]
     Active Substance: CYCLOPHOSPHAMIDE
     Indication: ACUTE MYELOID LEUKAEMIA RECURRENT
     Dosage: 1080 MG, SINGLE
     Route: 042
     Dates: start: 20160430, end: 20160430
  22. REGLAN [Concomitant]
     Active Substance: METOCLOPRAMIDE HYDROCHLORIDE
     Indication: NAUSEA
     Dosage: UNK
     Route: 042
     Dates: start: 20160502
  23. LASIX [Concomitant]
     Active Substance: FUROSEMIDE
     Indication: DIURETIC THERAPY
     Dosage: UNK
     Route: 042
     Dates: start: 20160501, end: 20160506
  24. AMBISOME [Concomitant]
     Active Substance: AMPHOTERICIN B
     Indication: ANTIFUNGAL PROPHYLAXIS
     Dosage: UNK
     Route: 042
     Dates: start: 20160428, end: 20160428
  25. CEFEPIME [Concomitant]
     Active Substance: CEFEPIME HYDROCHLORIDE
     Indication: ANTIBIOTIC PROPHYLAXIS
  26. HYDROXYZINE [Concomitant]
     Active Substance: HYDROXYZINE\HYDROXYZINE HYDROCHLORIDE
     Indication: PRURITUS
     Dosage: UNK
     Route: 048
     Dates: start: 20160507, end: 20160507
  27. OXYCODONE [Concomitant]
     Active Substance: OXYCODONE
     Indication: PAIN
     Dosage: UNK
     Route: 048
     Dates: start: 20160429, end: 20160503
  28. MYLOTARG [Suspect]
     Active Substance: GEMTUZUMAB OZOGAMICIN
     Indication: ACUTE MYELOID LEUKAEMIA RECURRENT
     Dosage: 2.5 MG, REGIMEN 2, COMBINATION THERAPY
     Route: 042
     Dates: start: 20160320, end: 20160326
  29. THIOTEPA. [Suspect]
     Active Substance: THIOTEPA
     Indication: ACUTE MYELOID LEUKAEMIA RECURRENT
     Dosage: 110 MG, Q24 HOURS FOR 2 DOSES
     Route: 042
     Dates: start: 20160501, end: 20160502
  30. TYLENOL [Concomitant]
     Active Substance: ACETAMINOPHEN
     Indication: PREMEDICATION
     Dosage: UNK
     Route: 042
     Dates: start: 20160428, end: 20160506
  31. AMPHOTERICIN B LIPID COMPLEX [Concomitant]
     Active Substance: AMPHOTERICIN B
     Indication: ANTIFUNGAL TREATMENT
     Dosage: UNK
     Route: 042
     Dates: start: 20160429, end: 20160505
  32. MYCOPHENOLATE MOFETIL. [Concomitant]
     Active Substance: MYCOPHENOLATE MOFETIL
     Indication: PROPHYLAXIS
     Dosage: UNK
     Route: 042
     Dates: start: 20160506
  33. PANTOPRAZOLE [Concomitant]
     Active Substance: PANTOPRAZOLE SODIUM
     Indication: PROPHYLAXIS
     Dosage: UNK
     Route: 042
     Dates: start: 20160506
  34. HYDROCORTISONE. [Concomitant]
     Active Substance: HYDROCORTISONE
     Indication: PROPHYLAXIS
     Dosage: UNK
     Route: 042
     Dates: start: 20160428, end: 20160506

REACTIONS (4)
  - Pulmonary oedema [Recovered/Resolved]
  - Respiratory failure [Recovered/Resolved]
  - Dyspnoea [Recovered/Resolved]
  - Stomatitis [Recovered/Resolved]

NARRATIVE: CASE EVENT DATE: 20160508
